FAERS Safety Report 11128491 (Version 1)
Quarter: 2015Q2

REPORT INFORMATION
  Report Type: Spontaneous
  Country: US (occurrence: None)
  Receive Date: 20150520
  Receipt Date: 20150520
  Transmission Date: 20150821
  Serious: Yes (Other)
  Sender: FDA-Public Use
  Company Number: None

PATIENT
  Age: 62 Year
  Sex: Female
  Weight: 61.24 kg

DRUGS (1)
  1. CREST 3D WHITE [Suspect]
     Active Substance: SODIUM FLUORIDE
     Indication: DENTAL CARE
     Route: 048
     Dates: end: 20150415

REACTIONS (9)
  - Oral mucosal erythema [None]
  - Oral disorder [None]
  - Mouth swelling [None]
  - Feeding disorder [None]
  - Gingival disorder [None]
  - Tongue disorder [None]
  - Immunodeficiency [None]
  - Oral pain [None]
  - Mental disorder [None]

NARRATIVE: CASE EVENT DATE: 20150219
